FAERS Safety Report 14965750 (Version 1)
Quarter: 2018Q2

REPORT INFORMATION
  Report Type: Spontaneous
  Country: GB (occurrence: GB)
  Receive Date: 20180602
  Receipt Date: 20180602
  Transmission Date: 20180711
  Serious: Yes (Hospitalization)
  Sender: FDA-Public Use
  Company Number: GB-AUROBINDO-AUR-APL-2018-028268

PATIENT
  Age: 54 Year
  Sex: Female
  Weight: 82.55 kg

DRUGS (3)
  1. LAMOTRIGINE. [Suspect]
     Active Substance: LAMOTRIGINE
     Indication: TRIGEMINAL NEURALGIA
     Dosage: 50 MILLIGRAM, ONCE A DAY
     Route: 048
     Dates: start: 20180424, end: 20180504
  2. EVOREL [Concomitant]
     Indication: PRODUCT USED FOR UNKNOWN INDICATION
     Dosage: UNK
     Route: 065
  3. AMITRIPTYLINE HYDROCHLORIDE. [Concomitant]
     Active Substance: AMITRIPTYLINE HYDROCHLORIDE
     Indication: PRODUCT USED FOR UNKNOWN INDICATION
     Dosage: UNK
     Route: 065

REACTIONS (14)
  - Headache [Unknown]
  - Pain [Unknown]
  - Rash maculo-papular [Unknown]
  - Disorientation [Unknown]
  - Vomiting [Unknown]
  - Pyrexia [Unknown]
  - Drug reaction with eosinophilia and systemic symptoms [Recovering/Resolving]
  - Burning sensation [Unknown]
  - Pruritus [Unknown]
  - Liver function test abnormal [Recovering/Resolving]
  - Musculoskeletal stiffness [Unknown]
  - Dizziness [Unknown]
  - Photophobia [Unknown]
  - Diarrhoea [Unknown]

NARRATIVE: CASE EVENT DATE: 20180424
